FAERS Safety Report 20935504 (Version 1)
Quarter: 2022Q2

REPORT INFORMATION
  Report Type: Spontaneous
  Country: ES (occurrence: ES)
  Receive Date: 20220609
  Receipt Date: 20220609
  Transmission Date: 20220721
  Serious: Yes (Hospitalization, Other)
  Sender: FDA-Public Use
  Company Number: ES-AEMPS-1192625

PATIENT
  Age: 17 Year
  Sex: Male
  Weight: 63.8 kg

DRUGS (2)
  1. CLOZAPINE [Suspect]
     Active Substance: CLOZAPINE
     Indication: Schizophrenia
     Dosage: 100 MILLIGRAM, TWO TIMES A DAY (1-0-1 )
     Route: 048
     Dates: start: 20220506, end: 20220511
  2. RISPERIDONE [Suspect]
     Active Substance: RISPERIDONE
     Indication: Schizophrenia
     Dosage: 3 GRAM, TWO TIMES A DAY (3 MG EVERY 12 HOURS)
     Route: 048
     Dates: start: 20220506, end: 20220511

REACTIONS (1)
  - Pulmonary embolism [Recovering/Resolving]

NARRATIVE: CASE EVENT DATE: 20220511
